FAERS Safety Report 6743223-9 (Version None)
Quarter: 2010Q2

REPORT INFORMATION
  Report Type: 
  Country: None (occurrence: None)
  Receive Date: 20100527
  Receipt Date: 20100520
  Transmission Date: 20101027
  Serious: Yes (Hospitalization, Other)
  Sender: FDA-Public Use
  Company Number: JP-ROXANE LABORATORIES, INC.-2010-RO-00613RO

PATIENT
  Age: 59 Year
  Sex: Female
  Weight: 48 kg

DRUGS (3)
  1. CYCLOPHOSPHAMIDE [Suspect]
     Indication: BREAST CANCER
  2. CYCLOPHOSPHAMIDE [Suspect]
     Route: 042
  3. ADRIAMYCIN PFS [Suspect]
     Indication: BREAST CANCER

REACTIONS (4)
  - ANAEMIA [None]
  - HYPOXIA [None]
  - LYMPHOCYTE PERCENTAGE DECREASED [None]
  - PNEUMONITIS [None]
